FAERS Safety Report 10780380 (Version 1)
Quarter: 2015Q1

REPORT INFORMATION
  Report Type: Spontaneous
  Country: US (occurrence: US)
  Receive Date: 20150210
  Receipt Date: 20150210
  Transmission Date: 20150721
  Serious: No
  Sender: FDA-Public Use
  Company Number: US-GLAXOSMITHKLINE-A1051409A

PATIENT

DRUGS (3)
  1. NICODERM CQ [Suspect]
     Active Substance: NICOTINE
     Indication: EX-TOBACCO USER
  2. NICODERM CQ [Suspect]
     Active Substance: NICOTINE
     Indication: EX-TOBACCO USER
  3. NICODERM CQ [Suspect]
     Active Substance: NICOTINE
     Indication: EX-TOBACCO USER

REACTIONS (9)
  - Dizziness [Recovered/Resolved]
  - Dysstasia [Recovered/Resolved]
  - Application site erythema [Recovered/Resolved]
  - Feeling abnormal [Recovered/Resolved]
  - Abnormal dreams [Recovered/Resolved]
  - Nausea [Recovered/Resolved]
  - Drug administration error [Unknown]
  - Application site irritation [Recovered/Resolved]
  - Application site hyperaesthesia [Recovered/Resolved]
